FAERS Safety Report 4353276-3 (Version None)
Quarter: 2004Q2

REPORT INFORMATION
  Report Type: 
  Country: None (occurrence: None)
  Receive Date: 20040503
  Receipt Date: 20040503
  Transmission Date: 20050107
  Serious: Yes (Hospitalization, Other)
  Sender: FDA-Public Use
  Company Number: None

PATIENT
  Age: 40 Year
  Sex: Female
  Weight: 93.7 kg

DRUGS (5)
  1. LISINOPRIL [Suspect]
     Indication: MICROALBUMINURIA
     Dosage: 5 MG PO QD
     Route: 048
     Dates: start: 20040102
  2. NPH INSULIN [Concomitant]
  3. REGULAR INSULINS [Concomitant]
  4. FES04 [Concomitant]
  5. FLONASE [Concomitant]

REACTIONS (1)
  - ANGIONEUROTIC OEDEMA [None]
